FAERS Safety Report 7433644-3 (Version None)
Quarter: 2011Q2

REPORT INFORMATION
  Report Type: 
  Country: None (occurrence: None)
  Receive Date: 20110422
  Receipt Date: 20110415
  Transmission Date: 20111010
  Serious: Yes (Hospitalization, Disabling)
  Sender: FDA-Public Use
  Company Number: US-MERCK-0902USA04514

PATIENT
  Age: 51 Year
  Sex: Female
  Weight: 97 kg

DRUGS (19)
  1. ZYPREXA [Concomitant]
     Route: 065
  2. AMBIEN [Concomitant]
     Route: 065
  3. FOSAMAX [Suspect]
     Route: 048
     Dates: start: 20010201, end: 20011201
  4. WELLBUTRIN [Concomitant]
     Route: 065
  5. ZOLOFT [Concomitant]
     Route: 065
  6. REMERON [Concomitant]
     Route: 065
  7. KLONOPIN [Concomitant]
     Indication: ANXIETY
     Route: 065
     Dates: start: 19980101
  8. LIPITOR [Concomitant]
     Route: 065
     Dates: end: 20060101
  9. FOSAMAX [Suspect]
     Route: 048
     Dates: start: 19990301, end: 20010101
  10. SYNTHROID [Concomitant]
     Indication: HYPOTHYROIDISM
     Route: 065
     Dates: start: 19850101
  11. FOSAMAX [Suspect]
     Route: 048
     Dates: start: 20010201, end: 20011201
  12. FOSAMAX [Suspect]
     Indication: OSTEOPOROSIS
     Route: 048
     Dates: start: 19980312, end: 20020401
  13. FOSAMAX [Suspect]
     Indication: OSTEOPENIA
     Route: 048
     Dates: start: 19980312, end: 20020401
  14. FOSAMAX [Suspect]
     Route: 048
     Dates: start: 20020401, end: 20080801
  15. CYTOMEL [Concomitant]
     Route: 065
     Dates: end: 20070101
  16. FOSAMAX [Suspect]
     Route: 048
     Dates: start: 20020401, end: 20080801
  17. FOSAMAX [Suspect]
     Route: 048
     Dates: start: 19990301, end: 20010101
  18. CALTRATE + D [Concomitant]
     Route: 065
  19. VIVELLE [Concomitant]
     Route: 065

REACTIONS (20)
  - ARTERIOSPASM CORONARY [None]
  - WEIGHT INCREASED [None]
  - GLUCOSE TOLERANCE IMPAIRED [None]
  - FEMUR FRACTURE [None]
  - IODINE ALLERGY [None]
  - INFECTION [None]
  - ROAD TRAFFIC ACCIDENT [None]
  - DENTAL CARIES [None]
  - STRESS FRACTURE [None]
  - LOW TURNOVER OSTEOPATHY [None]
  - ADJUSTMENT DISORDER [None]
  - ASTHMA [None]
  - COLONIC POLYP [None]
  - DIARRHOEA [None]
  - ANAEMIA [None]
  - HYPOPHOSPHATAEMIA [None]
  - ANXIETY [None]
  - TOOTH FRACTURE [None]
  - DEPRESSION [None]
  - OSTEOPOROSIS [None]
